FAERS Safety Report 13418940 (Version 4)
Quarter: 2017Q3

REPORT INFORMATION
  Report Type: Report from Study
  Country: AR (occurrence: AR)
  Receive Date: 20170407
  Receipt Date: 20170719
  Transmission Date: 20171127
  Serious: Yes (Death, Hospitalization)
  Sender: FDA-Public Use
  Company Number: PHHY2017AR029149

PATIENT
  Age: 81 Year
  Sex: Male

DRUGS (2)
  1. COSENTYX [Suspect]
     Active Substance: SECUKINUMAB
     Indication: PSORIASIS
     Dosage: 300 MG, QMO
     Route: 065
     Dates: start: 20161116
  2. COSENTYX [Suspect]
     Active Substance: SECUKINUMAB
     Indication: PSORIATIC ARTHROPATHY
     Dosage: 300 MG, UNK
     Route: 065
     Dates: start: 201704

REACTIONS (11)
  - Face injury [Unknown]
  - Coma [Unknown]
  - Blood pressure increased [Unknown]
  - Pain in extremity [Recovered/Resolved]
  - Cardiac disorder [Fatal]
  - Cardio-respiratory arrest [Fatal]
  - Pulmonary oedema [Unknown]
  - Cervical vertebral fracture [Recovering/Resolving]
  - Cardiomegaly [Fatal]
  - Gait disturbance [Unknown]
  - Fall [Recovering/Resolving]

NARRATIVE: CASE EVENT DATE: 20170203
